FAERS Safety Report 7440766-X (Version None)
Quarter: 2011Q2

REPORT INFORMATION
  Report Type: 
  Country: None (occurrence: None)
  Receive Date: 20110427
  Receipt Date: 20110421
  Transmission Date: 20111010
  Serious: Yes (Hospitalization)
  Sender: FDA-Public Use
  Company Number: JP-PFIZER INC-2011086810

PATIENT
  Age: 77 Year
  Sex: Male

DRUGS (2)
  1. FARMORUBICIN [Suspect]
     Indication: HEPATIC NEOPLASM MALIGNANT
     Dosage: 50 MG, 1X/DAY
     Dates: start: 20110404, end: 20110404
  2. LIPIODOL ULTRA-FLUID [Concomitant]
     Indication: HEPATIC NEOPLASM MALIGNANT
     Dosage: UNK
     Dates: start: 20110404, end: 20110404

REACTIONS (1)
  - ACUTE PULMONARY OEDEMA [None]
